FAERS Safety Report 12766129 (Version 1)
Quarter: 2016Q3

REPORT INFORMATION
  Report Type: Spontaneous
  Country: US (occurrence: US)
  Receive Date: 20160920
  Receipt Date: 20160920
  Transmission Date: 20161109
  Serious: Yes (Other)
  Sender: FDA-Public Use
  Company Number: None

PATIENT
  Age: 54 Year
  Sex: Female
  Weight: 68.4 kg

DRUGS (24)
  1. HYOSCYAMINE SULFATE. [Suspect]
     Active Substance: HYOSCYAMINE SULFATE
     Indication: GASTROINTESTINAL DISORDER
     Route: 060
     Dates: start: 20160303, end: 20160805
  2. BENICAR [Concomitant]
     Active Substance: OLMESARTAN MEDOXOMIL
  3. FLONAISE [Concomitant]
  4. ZANEX [Concomitant]
  5. AMLODIPINE [Concomitant]
     Active Substance: AMLODIPINE BESYLATE
  6. CLARITIN [Concomitant]
     Active Substance: LORATADINE
  7. GLUCOSAMINE [Concomitant]
     Active Substance: GLUCOSAMINE
  8. BROVANA [Concomitant]
     Active Substance: ARFORMOTEROL TARTRATE
  9. ZYRTEC [Concomitant]
     Active Substance: CETIRIZINE HYDROCHLORIDE
  10. MELATONIN [Concomitant]
     Active Substance: MELATONIN
  11. POLYETHYLENE GLYCOL [Concomitant]
     Active Substance: POLYETHYLENE GLYCOLS
  12. VITAMIN D [Concomitant]
     Active Substance: CHOLECALCIFEROL
  13. VITAMIN E [Concomitant]
     Active Substance: .ALPHA.-TOCOPHEROL
  14. BIOTIN [Concomitant]
     Active Substance: BIOTIN
  15. FLEXERIL [Concomitant]
     Active Substance: CYCLOBENZAPRINE HYDROCHLORIDE
  16. XOPENEX HFA [Concomitant]
     Active Substance: LEVALBUTEROL TARTRATE
  17. CALCIUM [Concomitant]
     Active Substance: CALCIUM
  18. PROBIOTIC [Concomitant]
     Active Substance: PROBIOTICS NOS
  19. MELOXICAM. [Concomitant]
     Active Substance: MELOXICAM
  20. VITAMIN C [Concomitant]
     Active Substance: ASCORBIC ACID
  21. SAVELLA [Concomitant]
     Active Substance: MILNACIPRAN HYDROCHLORIDE
  22. LEVOTHYROXIN [Concomitant]
     Active Substance: LEVOTHYROXINE
  23. LYRICA [Concomitant]
     Active Substance: PREGABALIN
  24. MONTELUKAST [Concomitant]
     Active Substance: MONTELUKAST SODIUM

REACTIONS (3)
  - Gastrointestinal disorder [None]
  - Product use issue [None]
  - Gastrointestinal pain [None]

NARRATIVE: CASE EVENT DATE: 20160303
